FAERS Safety Report 10245697 (Version 1)
Quarter: 2014Q2

REPORT INFORMATION
  Report Type: Spontaneous
  Country: US (occurrence: US)
  Receive Date: 20140619
  Receipt Date: 20140619
  Transmission Date: 20141212
  Serious: Yes (Other)
  Sender: FDA-Public Use
  Company Number: US-AMGEN INC.-USASP2014045500

PATIENT
  Age: 61 Year
  Sex: Female
  Weight: 81.63 kg

DRUGS (11)
  1. ENBREL [Suspect]
     Indication: PRODUCT USED FOR UNKNOWN INDICATION
     Dosage: 50 MG, QWK
     Route: 058
  2. SINGULAIR [Concomitant]
     Dosage: 10 MG, UNK
  3. PROTONIX [Concomitant]
     Dosage: 40 MG, UNK
  4. LOMOTIL                            /00034001/ [Concomitant]
     Dosage: 2.5 MG, UNK
  5. NEURONTIN [Concomitant]
     Dosage: 100 MG, UNK
  6. ATENOLOL [Concomitant]
     Dosage: 25 MG, UNK
  7. ETODOLAC [Concomitant]
     Dosage: 400 MG, UNK
  8. LOSARTAN POTASSIUM [Concomitant]
     Dosage: 25 MG, UNK
  9. CALCIUM +D                         /07511201/ [Concomitant]
     Dosage: UNK
  10. VITAMIN D                          /00107901/ [Concomitant]
     Dosage: 1000 UNIT, UNK
  11. LIDODERM [Concomitant]
     Dosage: 5 %, UNK

REACTIONS (3)
  - Injection site reaction [Unknown]
  - Injection site erythema [Unknown]
  - Injection site urticaria [Unknown]
